FAERS Safety Report 13698921 (Version 1)
Quarter: 2017Q2

REPORT INFORMATION
  Report Type: Report from Study
  Country: US (occurrence: US)
  Receive Date: 20170628
  Receipt Date: 20170628
  Transmission Date: 20170830
  Serious: Yes (Hospitalization, Other)
  Sender: FDA-Public Use
  Company Number: US-GILEAD-2017-0280213

PATIENT
  Age: 97 Year
  Sex: Female

DRUGS (1)
  1. RANOLAZINE. [Suspect]
     Active Substance: RANOLAZINE
     Indication: PRODUCT USED FOR UNKNOWN INDICATION
     Dosage: 500 MG, UNK
     Route: 048

REACTIONS (14)
  - Arteriosclerosis [Unknown]
  - Tooth disorder [Unknown]
  - Myocardial infarction [Unknown]
  - Type 1 diabetes mellitus [Unknown]
  - Diabetic ulcer [Unknown]
  - Hyperkalaemia [Unknown]
  - Osteoarthritis [Unknown]
  - Essential hypertension [Unknown]
  - Cervix carcinoma [Unknown]
  - Visual impairment [Unknown]
  - Renal mass [Unknown]
  - Hypercholesterolaemia [Unknown]
  - Diabetic neuropathy [Unknown]
  - Mobility decreased [Unknown]

NARRATIVE: CASE EVENT DATE: 2015
